FAERS Safety Report 8638257 (Version 4)
Quarter: 2012Q4

REPORT INFORMATION
  Report Type: 
  Country: BR (occurrence: BR)
  Receive Date: 20120627
  Receipt Date: 20120921
  Transmission Date: 20130627
  Serious: Yes (Other)
  Sender: FDA-Public Use
  Company Number: PHHY2012BR054129

PATIENT
  Age: 34 Year
  Sex: Female

DRUGS (1)
  1. TRILEPTAL [Suspect]
     Indication: EPILEPSY
     Dosage: 900 mg, (1 tablet and half of 600 mg)

REACTIONS (5)
  - Mental disorder [Recovered/Resolved]
  - Speech disorder [Recovered/Resolved]
  - Neck pain [Not Recovered/Not Resolved]
  - Malaise [Recovered/Resolved]
  - Dizziness [Recovered/Resolved]
